FAERS Safety Report 13395254 (Version 1)
Quarter: 2017Q1

REPORT INFORMATION
  Report Type: Spontaneous
  Country: US (occurrence: US)
  Receive Date: 20170331
  Receipt Date: 20170331
  Transmission Date: 20170429
  Serious: Yes (Life-Threatening, Disabling)
  Sender: FDA-Public Use
  Company Number: None

PATIENT
  Age: 39 Year
  Sex: Male
  Weight: 78.75 kg

DRUGS (7)
  1. MULTIVITAMIN [Concomitant]
     Active Substance: VITAMINS
  2. TETRACYCLINE [Concomitant]
     Active Substance: TETRACYCLINE
  3. ALLIPRONOL [Concomitant]
  4. TRUVADA [Suspect]
     Active Substance: EMTRICITABINE\TENOFOVIR DISOPROXIL FUMARATE
     Indication: HIV INFECTION
     Dosage: ?          QUANTITY:1 TABLET(S);?
     Route: 048
  5. CLINDAMYCIN. [Concomitant]
     Active Substance: CLINDAMYCIN
  6. PREZCOBIX [Concomitant]
     Active Substance: COBICISTAT\DARUNAVIR ETHANOLATE
  7. GABAPENTIN. [Concomitant]
     Active Substance: GABAPENTIN

REACTIONS (12)
  - Fatigue [None]
  - Chromaturia [None]
  - Paraesthesia [None]
  - Urinary retention [None]
  - Asthenia [None]
  - Sleep disorder [None]
  - Feeling cold [None]
  - Dyspnoea [None]
  - Heart rate increased [None]
  - Myalgia [None]
  - Dizziness [None]
  - Decreased appetite [None]

NARRATIVE: CASE EVENT DATE: 20170301
